FAERS Safety Report 6501344-X (Version None)
Quarter: 2009Q4

REPORT INFORMATION
  Report Type: 
  Country: None (occurrence: None)
  Receive Date: 20091215
  Receipt Date: 20091215
  Transmission Date: 20100525
  Serious: Yes (Other)
  Sender: FDA-Public Use
  Company Number: None

PATIENT
  Sex: Male
  Weight: 113.3993 kg

DRUGS (1)
  1. LITHIUM CARBONATE CAP [Suspect]
     Indication: BIPOLAR I DISORDER
     Dosage: 3 B.I.D. PO
     Route: 048
     Dates: start: 20091124, end: 20091211

REACTIONS (5)
  - DECREASED APPETITE [None]
  - DRUG INTOLERANCE [None]
  - DRUG LEVEL DECREASED [None]
  - INSOMNIA [None]
  - PRODUCT QUALITY ISSUE [None]
